FAERS Safety Report 25507851 (Version 1)
Quarter: 2025Q3

REPORT INFORMATION
  Report Type: Spontaneous
  Country: EU (occurrence: EU)
  Receive Date: 20250703
  Receipt Date: 20250703
  Transmission Date: 20251020
  Serious: Yes (Hospitalization, Other)
  Sender: ASTELLAS
  Company Number: EU-ASTELLAS-2022US007731

PATIENT
  Sex: Male

DRUGS (1)
  1. XTANDI [Suspect]
     Active Substance: ENZALUTAMIDE
     Indication: Prostate cancer
     Route: 065

REACTIONS (3)
  - Colon cancer [Unknown]
  - Anorectal polyp [Unknown]
  - Illness [Unknown]

NARRATIVE: CASE EVENT DATE: 20220223
